FAERS Safety Report 5576112-6 (Version None)
Quarter: 2007Q4

REPORT INFORMATION
  Report Type: 
  Country: None (occurrence: None)
  Receive Date: 20071226
  Receipt Date: 20071210
  Transmission Date: 20080405
  Serious: Yes (Other)
  Sender: FDA-Public Use
  Company Number: GXKR2007SE10645

PATIENT
  Sex: Male

DRUGS (1)
  1. AMLODIPIN HEXAL (NGX)(AMLODIPINE) UNKNOWN [Suspect]
     Indication: BLOOD PRESSURE INCREASED
     Dosage: ORAL
     Route: 048
     Dates: start: 20060101, end: 20070101

REACTIONS (8)
  - BURNING SENSATION [None]
  - CEREBROVASCULAR ACCIDENT [None]
  - COLD SWEAT [None]
  - DIARRHOEA [None]
  - DIZZINESS [None]
  - HEARING IMPAIRED [None]
  - HEMIPLEGIA [None]
  - VISUAL DISTURBANCE [None]
